FAERS Safety Report 4818122-X (Version None)
Quarter: 2005Q4

REPORT INFORMATION
  Report Type: 
  Country: None (occurrence: None)
  Receive Date: 20051102
  Receipt Date: 20051021
  Transmission Date: 20060501
  Serious: Yes (Hospitalization)
  Sender: FDA-Public Use
  Company Number: 2005SE06029

PATIENT
  Age: 23451 Day
  Sex: Male
  Weight: 81 kg

DRUGS (1)
  1. COKENZEN [Suspect]
     Indication: HYPERTENSION
     Route: 048
     Dates: start: 20030415

REACTIONS (5)
  - ASTHENIA [None]
  - COUGH [None]
  - DYSPNOEA [None]
  - EMPHYSEMA [None]
  - SYNCOPE [None]
